FAERS Safety Report 4294135-4 (Version None)
Quarter: 2004Q1

REPORT INFORMATION
  Report Type: 
  Country: None (occurrence: None)
  Receive Date: 20040212
  Receipt Date: 20040212
  Transmission Date: 20041129
  Serious: Yes (Life-Threatening, Hospitalization, Other)
  Sender: FDA-Public Use
  Company Number: None

PATIENT
  Sex: Female
  Weight: 72.5755 kg

DRUGS (1)
  1. CORDIS' CYPHER CORONARY STENT [Suspect]
     Indication: CORONARY ARTERY OCCLUSION
     Dates: start: 20031126, end: 20040211

REACTIONS (7)
  - ARTERY DISSECTION [None]
  - BLOOD PRESSURE IMMEASURABLE [None]
  - HYPERSENSITIVITY [None]
  - IATROGENIC INJURY [None]
  - PROCEDURAL COMPLICATION [None]
  - SWELLING [None]
  - URTICARIA [None]
